FAERS Safety Report 10034879 (Version 1)
Quarter: 2014Q1

REPORT INFORMATION
  Report Type: Spontaneous
  Country: US (occurrence: None)
  Receive Date: 20140306
  Receipt Date: 20140306
  Transmission Date: 20141002
  Serious: Yes (Hospitalization, Other)
  Sender: FDA-Public Use
  Company Number: 163-21880-13032967

PATIENT
  Age: 74 Year
  Sex: Male
  Weight: 92.99 kg

DRUGS (6)
  1. REVLIMID (LENALIDOMIDE) (10 MILLIGRAM, CAPSULES) [Suspect]
     Indication: MYELODYSPLASTIC SYNDROME
     Route: 048
     Dates: start: 20120912, end: 20121222
  2. ATENOLOL [Concomitant]
  3. FOSINOPRIL SODIUM [Concomitant]
  4. PREDNISONE [Concomitant]
  5. PROTONIX [Concomitant]
  6. BLOOD [Concomitant]

REACTIONS (2)
  - Full blood count decreased [None]
  - Drug ineffective [None]
